FAERS Safety Report 4388442-4 (Version None)
Quarter: 2004Q3

REPORT INFORMATION
  Report Type: 
  Country: None (occurrence: None)
  Receive Date: 20040701
  Receipt Date: 20040607
  Transmission Date: 20050211
  Serious: Yes (Other)
  Sender: FDA-Public Use
  Company Number: PHBS2004IT07704

PATIENT
  Age: 72 Year
  Sex: Female

DRUGS (2)
  1. ZOMETA [Suspect]
     Indication: MULTIPLE MYELOMA
     Dosage: 4 MG EVERY 4 WEEKS
     Route: 042
     Dates: start: 20011018, end: 20040401
  2. PEGINTERFERON ALFA-2A [Concomitant]
     Route: 065

REACTIONS (5)
  - BONE DENSITY DECREASED [None]
  - FISTULA [None]
  - INFLAMMATION LOCALISED [None]
  - OSTEOLYSIS [None]
  - SURGERY [None]
